FAERS Safety Report 5872048-1 (Version None)
Quarter: 2008Q3

REPORT INFORMATION
  Report Type: 
  Country: None (occurrence: None)
  Receive Date: 20080905
  Receipt Date: 20080901
  Transmission Date: 20090109
  Serious: Yes (Life-Threatening, Hospitalization)
  Sender: FDA-Public Use
  Company Number: GB-AVENTIS-200721465GDDC

PATIENT
  Age: 28 Year
  Sex: Female

DRUGS (3)
  1. DDAVP [Suspect]
  2. TRANEXAMIC ACID [Suspect]
     Route: 048
  3. PROGESTERONE [Concomitant]
     Indication: CONTRACEPTION

REACTIONS (2)
  - DRUG INTERACTION [None]
  - MYOCARDIAL INFARCTION [None]
